FAERS Safety Report 7119445-4 (Version None)
Quarter: 2010Q4

REPORT INFORMATION
  Report Type: 
  Country: None (occurrence: None)
  Receive Date: 20101123
  Receipt Date: 20101110
  Transmission Date: 20110411
  Serious: Yes (Other)
  Sender: FDA-Public Use
  Company Number: US-ACTELION-A-NJ2010-41020

PATIENT

DRUGS (3)
  1. BOSENTAN TABLET 125 MG US [Suspect]
     Indication: PULMONARY ARTERIAL HYPERTENSION
     Dosage: 125 MG, BID
     Route: 048
     Dates: start: 20100101, end: 20101001
  2. BOSENTAN TABLET 125 MG US [Suspect]
     Dosage: UNK
     Route: 048
     Dates: start: 20100825, end: 20100101
  3. BOSENTAN TABLET 125 MG US [Suspect]
     Dosage: 62.5 MG, BID
     Route: 048
     Dates: start: 20101001, end: 20101020

REACTIONS (5)
  - CHEST PAIN [None]
  - CHOKING [None]
  - FLUSHING [None]
  - HEADACHE [None]
  - NAUSEA [None]
